FAERS Safety Report 13239316 (Version 1)
Quarter: 2017Q1

REPORT INFORMATION
  Report Type: Spontaneous
  Country: FR (occurrence: FR)
  Receive Date: 20170216
  Receipt Date: 20170216
  Transmission Date: 20170428
  Serious: Yes (Hospitalization)
  Sender: FDA-Public Use
  Company Number: FR-SA-2017SA025614

PATIENT
  Age: 44 Year
  Sex: Male

DRUGS (5)
  1. CLOPIDOGREL BISULFATE. [Suspect]
     Active Substance: CLOPIDOGREL BISULFATE
     Indication: ISCHAEMIC HEART DISEASE PROPHYLAXIS
     Route: 048
     Dates: start: 20170120, end: 20170201
  2. VALSARTAN. [Suspect]
     Active Substance: VALSARTAN
     Indication: ISCHAEMIC HEART DISEASE PROPHYLAXIS
     Dosage: ON THE NIGHT OF 31 JANUARY 2017, OR 1ST FEBRUARY IN THE MORNING THE DRUG WAS STOPPED.
     Route: 048
     Dates: start: 20170120
  3. ATORVASTATIN [Suspect]
     Active Substance: ATORVASTATIN
     Indication: ISCHAEMIC HEART DISEASE PROPHYLAXIS
     Dosage: ON THE NIGHT OF 31 JANUARY 2017, OR 1ST FEBRUARY IN THE MORNING THE DRUG WAS STOPPED.
     Route: 048
     Dates: start: 20170120
  4. BISOPROLOL FUMARATE. [Suspect]
     Active Substance: BISOPROLOL FUMARATE
     Indication: ISCHAEMIC HEART DISEASE PROPHYLAXIS
     Route: 048
     Dates: start: 20170120
  5. KARDEGIC [Suspect]
     Active Substance: ASPIRIN LYSINE
     Indication: ISCHAEMIC HEART DISEASE PROPHYLAXIS
     Route: 048
     Dates: start: 20170120

REACTIONS (9)
  - Rash pruritic [Unknown]
  - Arthralgia [Unknown]
  - Rash [Unknown]
  - Pyrexia [Unknown]
  - Oedema peripheral [Unknown]
  - Renal failure [Unknown]
  - Serum sickness [Unknown]
  - Paraesthesia [Unknown]
  - Rash papular [Unknown]

NARRATIVE: CASE EVENT DATE: 20170129
